FAERS Safety Report 7071851-2 (Version None)
Quarter: 2010Q4

REPORT INFORMATION
  Report Type: 
  Country: None (occurrence: None)
  Receive Date: 20101029
  Receipt Date: 20101018
  Transmission Date: 20110411
  Serious: Yes (Hospitalization)
  Sender: FDA-Public Use
  Company Number: PHHY2010ES69157

PATIENT
  Age: 73 Year
  Sex: Male

DRUGS (4)
  1. TEGRETOL [Suspect]
     Dosage: 400 MG, QD
     Route: 048
     Dates: start: 20100301, end: 20100921
  2. ACETYLCYSTEINE [Concomitant]
     Dosage: 600 MG, QD
     Route: 048
  3. OMEPRAZOL ^ACYFABRIK^ [Concomitant]
     Dosage: 20 MG, QD
     Route: 048
  4. DEPAKENE [Concomitant]
     Dosage: 400 MG, QD
     Route: 048
     Dates: start: 20100301

REACTIONS (3)
  - BRAIN INJURY [None]
  - HYPONATRAEMIA [None]
  - METABOLIC DISORDER [None]
